FAERS Safety Report 9603265 (Version 1)
Quarter: 2013Q4

REPORT INFORMATION
  Report Type: Spontaneous
  Country: NL (occurrence: NL)
  Receive Date: 20131007
  Receipt Date: 20131007
  Transmission Date: 20140711
  Serious: Yes (Hospitalization)
  Sender: FDA-Public Use
  Company Number: NL-TEVA-434356ISR

PATIENT
  Age: 60 Year
  Sex: Female

DRUGS (6)
  1. TRIMETHOPRIM TABLET 100MG [Suspect]
     Dosage: 100 MILLIGRAM DAILY; 1DD1
     Route: 048
  2. PARACETAMOL TABLET  500MG [Concomitant]
     Dosage: WHEN NEEDED 4 TIMES DAILY 2
     Route: 048
  3. FOLIUMZUUR TABLET 0,5MG [Concomitant]
     Dosage: .5 MILLIGRAM DAILY; 1DD1
     Route: 048
  4. MOVICOLON POWDER DRINK IN SACHET [Concomitant]
     Dosage: 1 DOSAGE FORMS DAILY; 1DD1
     Route: 048
  5. MELATONINE TABLET 5MG [Concomitant]
     Dosage: 5 MILLIGRAM DAILY; 1DD1
     Route: 048
  6. OMEPRAZOL CAPSULE MGA 20MG [Concomitant]
     Dosage: 20 MILLIGRAM DAILY; 1DD1 -} 2DD1
     Route: 048

REACTIONS (2)
  - Thrombocytopenia [Unknown]
  - Immune thrombocytopenic purpura [Unknown]
